FAERS Safety Report 10064657 (Version 2)
Quarter: 2014Q2

REPORT INFORMATION
  Report Type: Spontaneous
  Country: TR (occurrence: TR)
  Receive Date: 20140408
  Receipt Date: 20140408
  Transmission Date: 20141212
  Serious: Yes (Other)
  Sender: FDA-Public Use
  Company Number: TR-NOVOPROD-384927

PATIENT
  Age: 33 Year
  Sex: Female
  Weight: 88 kg

DRUGS (4)
  1. NOVORAPID FLEXPEN [Suspect]
     Indication: TYPE 2 DIABETES MELLITUS
     Dosage: 12 U, QD
     Route: 058
     Dates: start: 20130724, end: 20130914
  2. LEVEMIR FLEXPEN [Suspect]
     Indication: TYPE 2 DIABETES MELLITUS
     Dosage: 8 U, QD
     Route: 058
     Dates: start: 20130724, end: 20130914
  3. PROGESTAN [Concomitant]
     Indication: PROPHYLAXIS OF ABORTION
     Dosage: 2X1
     Route: 048
     Dates: start: 201305, end: 20130914
  4. IRON [Concomitant]
     Dosage: 1X1
     Route: 048
     Dates: start: 20130715, end: 20130914

REACTIONS (2)
  - Abortion spontaneous [Recovered/Resolved]
  - Exposure during pregnancy [Recovered/Resolved]
